FAERS Safety Report 7609253-X (Version None)
Quarter: 2011Q3

REPORT INFORMATION
  Report Type: 
  Country: None (occurrence: None)
  Receive Date: 20110714
  Receipt Date: 20110707
  Transmission Date: 20111222
  Serious: Yes (Death, Other)
  Sender: FDA-Public Use
  Company Number: US-NAPPMUNDI-USA-2011-0067193

PATIENT
  Age: 17 Year
  Sex: Male

DRUGS (4)
  1. OXYCODONE HCL [Suspect]
     Indication: DRUG ABUSE
     Dosage: UNK
  2. EMBEDA [Suspect]
     Indication: DRUG ABUSE
  3. XANAX [Suspect]
     Indication: DRUG ABUSE
  4. PERCOCET [Suspect]
     Indication: DRUG ABUSE

REACTIONS (2)
  - MYOCARDIAL INFARCTION [None]
  - DRUG ABUSE [None]
